FAERS Safety Report 17899457 (Version 1)
Quarter: 2020Q2

REPORT INFORMATION
  Report Type: Spontaneous
  Country: IT (occurrence: IT)
  Receive Date: 20200616
  Receipt Date: 20200616
  Transmission Date: 20200714
  Serious: Yes (Life-Threatening, Hospitalization, Other)
  Sender: FDA-Public Use
  Company Number: IT-LUPIN PHARMACEUTICALS INC.-2020-02813

PATIENT
  Age: 59 Year
  Sex: Female

DRUGS (6)
  1. CALCIUM ACETATE. [Suspect]
     Active Substance: CALCIUM ACETATE
     Indication: HYPOPARATHYROIDISM
     Dosage: 3000 MILLIGRAM, QD
     Route: 065
  2. LEVOTHYROXINE. [Concomitant]
     Active Substance: LEVOTHYROXINE
     Indication: HYPOTHYROIDISM
     Dosage: 125 MICROGRAM, QD
     Route: 065
  3. HYDROCHLOROTHIAZIDE. [Suspect]
     Active Substance: HYDROCHLOROTHIAZIDE
     Indication: DIURETIC THERAPY
     Dosage: 50 MILLIGRAM, QD
     Route: 065
  4. CALCITRIOL. [Suspect]
     Active Substance: CALCITRIOL
     Indication: HYPOPARATHYROIDISM
     Dosage: 1 MICROGRAM, QD
     Route: 048
  5. WARFARIN [Concomitant]
     Active Substance: WARFARIN
     Indication: PROPHYLAXIS
     Dosage: UNK
     Route: 065
  6. POTASSIUM CHLORIDE. [Concomitant]
     Active Substance: POTASSIUM CHLORIDE
     Indication: PRODUCT USED FOR UNKNOWN INDICATION
     Dosage: 1800 MILLIGRAM, QD (STOPPED)
     Route: 048

REACTIONS (1)
  - Milk-alkali syndrome [Recovered/Resolved]
